FAERS Safety Report 5130277-9 (Version None)
Quarter: 2006Q4

REPORT INFORMATION
  Report Type: 
  Country: None (occurrence: None)
  Receive Date: 20061019
  Receipt Date: 20060505
  Transmission Date: 20070319
  Serious: Yes (Hospitalization)
  Sender: FDA-Public Use
  Company Number: DK-BAYER-200611833GDS

PATIENT
  Age: 65 Year
  Sex: Male
  Weight: 66 kg

DRUGS (26)
  1. SORAFENIB [Suspect]
     Indication: RENAL CELL CARCINOMA STAGE UNSPECIFIED
     Dosage: TOTAL DAILY DOSE: 400 MG
     Route: 048
     Dates: start: 20060603, end: 20060724
  2. SORAFENIB [Suspect]
     Dosage: TOTAL DAILY DOSE: 400 MG
     Route: 048
     Dates: start: 20060806
  3. SORAFENIB [Suspect]
     Dosage: TOTAL DAILY DOSE: 800 MG
     Route: 048
     Dates: start: 20060403, end: 20060602
  4. SORAFENIB [Suspect]
     Dosage: TOTAL DAILY DOSE: 800 MG
     Route: 048
     Dates: start: 20060724, end: 20060804
  5. FURIX [Concomitant]
     Indication: HYPERTENSION
     Route: 048
     Dates: start: 20060301
  6. FURIX [Concomitant]
     Route: 048
     Dates: start: 20060101
  7. AMLODIPINE [Concomitant]
     Indication: HYPERTENSION
     Route: 048
     Dates: start: 20060301, end: 20060502
  8. KALEORID [Concomitant]
     Indication: ELECTROLYTE SUBSTITUTION THERAPY
     Route: 048
     Dates: start: 20060301, end: 20060101
  9. KALEORID [Concomitant]
     Route: 048
     Dates: start: 20060101
  10. MORPHINE [Concomitant]
     Indication: PAIN
     Route: 048
     Dates: start: 20060601
  11. EMPERAL [Concomitant]
     Indication: NAUSEA
     Route: 048
     Dates: start: 20060301
  12. MAGNYL [Concomitant]
     Indication: ISCHAEMIC HEART DISEASE PROPHYLAXIS
     Route: 048
     Dates: start: 19900101, end: 20060426
  13. MAGNYL [Concomitant]
     Route: 048
  14. MARTINE [Concomitant]
     Indication: PAIN
     Route: 065
     Dates: start: 20060601
  15. BLOOD TRANSFUSION [Concomitant]
     Indication: HAEMOGLOBIN DECREASED
     Route: 065
     Dates: start: 20060530, end: 20060530
  16. BLOOD TRANSFUSION [Concomitant]
     Route: 065
     Dates: start: 20060405, end: 20060405
  17. NITROMEX [Concomitant]
     Indication: CHEST PAIN
     Route: 065
     Dates: start: 20060501
  18. PROLEUKIN [Concomitant]
     Indication: NEOPLASM MALIGNANT
     Route: 065
     Dates: start: 20051114, end: 20051128
  19. INTERFERON-ALPHA [Concomitant]
     Indication: NEOPLASM MALIGNANT
     Route: 065
     Dates: start: 20051114, end: 20051128
  20. DUOVENT [Concomitant]
     Indication: DYSPNOEA
     Route: 065
     Dates: start: 20060524
  21. FUROSEMIDE [Concomitant]
     Indication: HYPERTENSION
     Route: 048
  22. SELOZOK [Concomitant]
     Indication: DRUG USE FOR UNKNOWN INDICATION
     Route: 048
     Dates: start: 20060502
  23. CORDARONE [Concomitant]
     Indication: ACUTE MYOCARDIAL INFARCTION
     Route: 048
     Dates: start: 20060616
  24. CYCLOKAPRON [Concomitant]
     Indication: HAEMOPTYSIS
     Route: 048
     Dates: start: 20060101
  25. MYCOMYST (ACETYLCYSTEIN) [Concomitant]
     Indication: DYSPNOEA
     Route: 048
     Dates: start: 20060701
  26. PREDNISOLON [Concomitant]
     Indication: DYSPNOEA
     Route: 048
     Dates: start: 20060701

REACTIONS (3)
  - ACUTE MYOCARDIAL INFARCTION [None]
  - DYSPNOEA [None]
  - HAEMOPTYSIS [None]
